FAERS Safety Report 15291969 (Version 7)
Quarter: 2020Q3

REPORT INFORMATION
  Report Type: Report from Study
  Country: None (occurrence: BE)
  Receive Date: 20180818
  Receipt Date: 20200702
  Transmission Date: 20201102
  Serious: Yes (Death, Hospitalization)
  Sender: FDA-Public Use
  Company Number: BE-ABBVIE-18S-013-2450763-00

PATIENT
  Age: 88 Year
  Sex: Female

DRUGS (14)
  1. STALEVO [Concomitant]
     Active Substance: CARBIDOPA\ENTACAPONE\LEVODOPA
     Indication: PARKINSON^S DISEASE
     Dosage: FORM STRENGTH: 200MG/50MG/200MG
     Route: 048
  2. BIOFENAC [Concomitant]
     Indication: PRODUCT USED FOR UNKNOWN INDICATION
     Dosage: WHEN MUCH PAIN
     Route: 065
  3. PANTOMED [Concomitant]
     Indication: PROPHYLAXIS
     Route: 048
     Dates: end: 20180807
  4. STALEVO [Concomitant]
     Active Substance: CARBIDOPA\ENTACAPONE\LEVODOPA
     Dosage: 4X DAY, PD EMERGENCY MEDICATION
     Route: 048
  5. DUODOPA [Suspect]
     Active Substance: CARBIDOPA\LEVODOPA
     Indication: PARKINSON^S DISEASE
     Dosage: TITRATION
     Route: 050
     Dates: start: 20160620, end: 20160623
  6. MARCOUMAR [Concomitant]
     Active Substance: PHENPROCOUMON
     Indication: ATRIAL FIBRILLATION
     Route: 048
     Dates: start: 2013, end: 20180807
  7. ATORVASTATINE [Concomitant]
     Active Substance: ATORVASTATIN
     Indication: HYPERLIPIDAEMIA
     Route: 048
     Dates: start: 2010, end: 20180807
  8. DUODOPA [Suspect]
     Active Substance: CARBIDOPA\LEVODOPA
     Dosage: MD: 4ML; CD: 3.0 FOR 16HRS; ED: 1.5ML
     Route: 050
     Dates: start: 20160829, end: 201808
  9. ZALDIAR [Concomitant]
     Active Substance: ACETAMINOPHEN\TRAMADOL HYDROCHLORIDE
     Indication: PAIN
     Dosage: 37.5?325 MG
     Route: 048
     Dates: end: 20180807
  10. SECTRAZIDE [Concomitant]
     Active Substance: ACEBUTOLOL\HYDROCHLOROTHIAZIDE
     Indication: HYPERTENSION
     Dosage: 200?12.5 MG
     Route: 048
     Dates: start: 20100806, end: 20180807
  11. MARCOUMAR [Concomitant]
     Active Substance: PHENPROCOUMON
     Route: 048
     Dates: start: 2013, end: 20180807
  12. BACTROBAN [Concomitant]
     Active Substance: MUPIROCIN\MUPIROCIN CALCIUM
     Indication: MEDICAL DEVICE SITE PAIN
     Dosage: APPLICATION
     Route: 061
     Dates: start: 20161208, end: 20180807
  13. MOVICOL [Concomitant]
     Active Substance: POLYETHYLENE GLYCOL 3350\POTASSIUM CHLORIDE\SODIUM BICARBONATE\SODIUM CHLORIDE
     Indication: CONSTIPATION
     Route: 048
     Dates: start: 20160903, end: 20180807
  14. BACTROBAN [Concomitant]
     Active Substance: MUPIROCIN\MUPIROCIN CALCIUM
     Indication: WOUND COMPLICATION

REACTIONS (2)
  - Malignant peritoneal neoplasm [Fatal]
  - General physical health deterioration [Fatal]

NARRATIVE: CASE EVENT DATE: 20180807
